FAERS Safety Report 24757541 (Version 2)
Quarter: 2025Q1

REPORT INFORMATION
  Report Type: Spontaneous
  Country: ES (occurrence: ES)
  Receive Date: 20241220
  Receipt Date: 20250107
  Transmission Date: 20250409
  Serious: Yes (Death, Other)
  Sender: AUROBINDO
  Company Number: ES-LEO Pharma-375583

PATIENT
  Age: 57 Year
  Sex: Female
  Weight: 77 kg

DRUGS (4)
  1. OXALIPLATIN [Suspect]
     Active Substance: OXALIPLATIN
     Indication: Colon cancer metastatic
     Route: 065
  2. FLUOROURACIL [Suspect]
     Active Substance: FLUOROURACIL
     Indication: Colon cancer metastatic
     Route: 065
  3. LEUCOVORIN [Suspect]
     Active Substance: LEUCOVORIN\LEUCOVORIN CALCIUM
     Indication: Colon cancer metastatic
     Route: 065
  4. INNOHEP [Suspect]
     Active Substance: TINZAPARIN SODIUM
     Indication: Deep vein thrombosis
     Route: 065
     Dates: start: 202009

REACTIONS (4)
  - Neoplasm progression [Fatal]
  - Rectal haemorrhage [Recovered/Resolved]
  - Pulmonary embolism [Unknown]
  - Haemoglobin decreased [Unknown]

NARRATIVE: CASE EVENT DATE: 20210101
